FAERS Safety Report 8722053 (Version 2)
Quarter: 2012Q4

REPORT INFORMATION
  Report Type: 
  Country: US (occurrence: US)
  Receive Date: 20120814
  Receipt Date: 20121008
  Transmission Date: 20130627
  Serious: Yes (Other)
  Sender: FDA-Public Use
  Company Number: PHEH2012US015585

PATIENT
  Sex: Female

DRUGS (1)
  1. GLEEVEC [Suspect]
     Indication: CHRONIC MYELOID LEUKAEMIA
     Dosage: 200 mg, UNK
     Route: 048
     Dates: start: 20110813

REACTIONS (6)
  - Renal disorder [Unknown]
  - Urinary tract infection [Unknown]
  - Kidney infection [Unknown]
  - Dysuria [Unknown]
  - Cystitis [Unknown]
  - Muscle spasms [Unknown]
